FAERS Safety Report 7332382-5 (Version None)
Quarter: 2011Q1

REPORT INFORMATION
  Report Type: 
  Country: None (occurrence: None)
  Receive Date: 20110304
  Receipt Date: 20110224
  Transmission Date: 20110831
  Serious: Yes (Life-Threatening)
  Sender: FDA-Public Use
  Company Number: B0701909A

PATIENT
  Age: 71 Year
  Sex: Male

DRUGS (17)
  1. FUROSEMIDE [Concomitant]
     Route: 065
  2. FELODIPINE [Concomitant]
     Route: 065
  3. NITROGLYCERIN [Concomitant]
     Route: 065
  4. ROCURONIUM BROMIDE [Concomitant]
     Route: 065
  5. AMPICILLIN SODIUM/SULBACTAM SODIUM [Suspect]
     Route: 042
  6. METOCLOPRAMIDE [Concomitant]
     Route: 065
  7. ATORVASTATIN CALCIUM [Concomitant]
     Route: 065
  8. ISOSORBIDE MONONITRATE [Concomitant]
     Route: 065
  9. FENTANYL [Concomitant]
     Route: 065
  10. TEMAZEPAM [Concomitant]
     Route: 065
  11. RANITIDINE [Concomitant]
     Route: 065
  12. NICORANDIL [Concomitant]
     Route: 065
  13. LISINOPRIL [Concomitant]
     Route: 065
  14. PROPOFOL [Concomitant]
     Route: 065
  15. BISOPROLOL FUMARATE [Concomitant]
     Route: 065
  16. ASPIRIN [Concomitant]
     Route: 065
  17. SEVOFLURANE [Concomitant]
     Route: 065

REACTIONS (4)
  - VENTRICULAR FIBRILLATION [None]
  - ANAPHYLACTIC REACTION [None]
  - BRONCHOSPASM [None]
  - FIBRINOLYSIS [None]
